FAERS Safety Report 6728181-5 (Version None)
Quarter: 2010Q2

REPORT INFORMATION
  Report Type: 
  Country: None (occurrence: None)
  Receive Date: 20100517
  Receipt Date: 20100506
  Transmission Date: 20101027
  Serious: Yes (Other)
  Sender: FDA-Public Use
  Company Number: B0649038A

PATIENT
  Age: 46 Year
  Sex: Female

DRUGS (1)
  1. CEFUROXIME SODIUM [Suspect]
     Route: 042

REACTIONS (3)
  - ERYTHEMA [None]
  - PSORIASIS [None]
  - SKIN LESION [None]
